FAERS Safety Report 5393115-5 (Version None)
Quarter: 2007Q3

REPORT INFORMATION
  Report Type: 
  Country: None (occurrence: None)
  Receive Date: 20070718
  Receipt Date: 20070704
  Transmission Date: 20080115
  Serious: Yes (Disabling)
  Sender: FDA-Public Use
  Company Number: 100#03#2007-02555

PATIENT
  Age: 78 Year
  Sex: Female

DRUGS (2)
  1. TRAMADOL HCL [Suspect]
     Indication: PAIN
     Dosage: 50 MG FOUR TIMES A DAY, ORAL
     Route: 048
     Dates: start: 20070623, end: 20070625
  2. PARACETAMOL(PARACETAMOL) (PARACETAMOL) [Concomitant]

REACTIONS (1)
  - OEDEMA PERIPHERAL [None]
